FAERS Safety Report 9733478 (Version 1)
Quarter: 2013Q4

REPORT INFORMATION
  Report Type: Report from Study
  Country: CA (occurrence: CA)
  Receive Date: 20131205
  Receipt Date: 20131205
  Transmission Date: 20140711
  Serious: Yes (Other)
  Sender: FDA-Public Use
  Company Number: CA-JNJFOC-20131118633

PATIENT
  Sex: Female
  Weight: 55.34 kg

DRUGS (3)
  1. REMICADE [Suspect]
     Indication: CROHN^S DISEASE
     Route: 042
     Dates: start: 200903
  2. CELEXA [Concomitant]
     Route: 065
  3. BIRTH CONTROL PILL [Concomitant]
     Indication: CONTRACEPTION
     Route: 065

REACTIONS (2)
  - Cyst [Recovering/Resolving]
  - Sweat gland disorder [Unknown]
